FAERS Safety Report 21540194 (Version 1)
Quarter: 2022Q4

REPORT INFORMATION
  Report Type: Other
  Country: MX (occurrence: None)
  Receive Date: 20221102
  Receipt Date: 20221102
  Transmission Date: 20230113
  Serious: No
  Sender: FDA-Public Use
  Company Number: MX-ROCHE-3211405

PATIENT
  Age: 24 Year
  Sex: Female

DRUGS (4)
  1. OCREVUS [Suspect]
     Active Substance: OCRELIZUMAB
     Indication: Multiple sclerosis
     Route: 042
     Dates: start: 20201028
  2. COVID-19 VACCINE [Concomitant]
     Indication: COVID-19 immunisation
     Dosage: DOSE AND FREQUENCY WERE NOT REPORTED
     Dates: start: 202107
  3. COVID-19 VACCINE [Concomitant]
     Dosage: DOSE AND FREQUENCY WERE NOT REPORTED
     Dates: start: 202109
  4. ASTRAZENECA COVID-19 VACCINE [Concomitant]
     Active Substance: AZD-1222
     Indication: COVID-19 immunisation
     Dosage: DOSE AND FREQUENCY WERE NOT REPORTED
     Dates: start: 202207

REACTIONS (1)
  - COVID-19 [Recovered/Resolved]

NARRATIVE: CASE EVENT DATE: 20220801
